FAERS Safety Report 5601472-7 (Version None)
Quarter: 2008Q1

REPORT INFORMATION
  Report Type: 
  Country: None (occurrence: None)
  Receive Date: 20080118
  Receipt Date: 20070104
  Transmission Date: 20080703
  Serious: Yes (Hospitalization)
  Sender: FDA-Public Use
  Company Number: PIR# 0801015

PATIENT
  Age: 73 Year
  Sex: Male

DRUGS (1)
  1. DEXTROSE 5% AND POTASSIUM CHLORIDE 0.075% IN PLASTIC CONTAINER [Suspect]

REACTIONS (21)
  - ATRIOVENTRICULAR BLOCK FIRST DEGREE [None]
  - BLOOD PRESSURE INCREASED [None]
  - BRADYCARDIA [None]
  - BUNDLE BRANCH BLOCK LEFT [None]
  - C-REACTIVE PROTEIN INCREASED [None]
  - CONFUSIONAL STATE [None]
  - DRUG ADMINISTRATION ERROR [None]
  - DYSKINESIA [None]
  - HAEMOGLOBIN DECREASED [None]
  - HEART RATE INCREASED [None]
  - HYPOTENSION [None]
  - LIVEDO RETICULARIS [None]
  - LOSS OF CONSCIOUSNESS [None]
  - MEDICATION ERROR [None]
  - MENTAL DISORDER [None]
  - METABOLIC ACIDOSIS [None]
  - MUSCLE SPASMS [None]
  - PERIPHERAL COLDNESS [None]
  - RESPIRATION ABNORMAL [None]
  - WHITE BLOOD CELL COUNT INCREASED [None]
  - WRONG DRUG ADMINISTERED [None]
